FAERS Safety Report 4303550-1 (Version None)
Quarter: 2004Q1

REPORT INFORMATION
  Report Type: 
  Country: None (occurrence: None)
  Receive Date: 20040224
  Receipt Date: 20040224
  Transmission Date: 20041129
  Serious: No
  Sender: FDA-Public Use
  Company Number: None

PATIENT
  Age: 21 Year
  Sex: Male
  Weight: 54.4316 kg

DRUGS (1)
  1. CLOZAPINE [Suspect]
     Indication: SCHIZOPHRENIA, PARANOID TYPE
     Dosage: 100 MG PO QAM + 300 MG PO QHS
     Route: 048
     Dates: start: 20030724, end: 20030909

REACTIONS (3)
  - COUGH [None]
  - PHARYNGITIS [None]
  - PYREXIA [None]
